FAERS Safety Report 7687260-9 (Version None)
Quarter: 2011Q3

REPORT INFORMATION
  Report Type: 
  Country: None (occurrence: None)
  Receive Date: 20110816
  Receipt Date: 20110803
  Transmission Date: 20111222
  Serious: Yes (Other)
  Sender: FDA-Public Use
  Company Number: GB-MYLANLABS-2011S1016112

PATIENT
  Age: 43 Year
  Sex: Female
  Weight: 47 kg

DRUGS (15)
  1. SERTRALINE HYDROCHLORIDE [Suspect]
     Indication: PRODUCT USED FOR UNKNOWN INDICATION
     Dates: start: 20110712
  2. MEBEVERINE [Concomitant]
     Indication: PRODUCT USED FOR UNKNOWN INDICATION
     Dates: start: 20110712
  3. HYOSCINE HBR HYT [Concomitant]
     Indication: PRODUCT USED FOR UNKNOWN INDICATION
     Dates: start: 20110712, end: 20110713
  4. LEVOTHYROXINE SODIUM [Concomitant]
     Dates: start: 20110706
  5. LEVOTHYROXINE SODIUM [Concomitant]
     Dates: start: 20110607, end: 20110705
  6. LORATADINE [Concomitant]
     Indication: PRODUCT USED FOR UNKNOWN INDICATION
     Dates: start: 20110407, end: 20110507
  7. PROGUANIL [Concomitant]
     Indication: PRODUCT USED FOR UNKNOWN INDICATION
     Dates: start: 20110517, end: 20110604
  8. ACETAMINOPHEN AND CODEINE PHOSPHATE [Concomitant]
     Dates: start: 20110408, end: 20110506
  9. ACETAMINOPHEN AND CODEINE PHOSPHATE [Concomitant]
     Dates: start: 20110509, end: 20110606
  10. NORETHINDRONE ACETATE AND ETHINYL ESTRADIOL [Concomitant]
     Indication: PRODUCT USED FOR UNKNOWN INDICATION
     Dates: start: 20110309
  11. ACETAMINOPHEN AND CODEINE PHOSPHATE [Concomitant]
     Indication: PRODUCT USED FOR UNKNOWN INDICATION
     Dates: start: 20110607, end: 20110705
  12. LEVOTHYROXINE SODIUM [Concomitant]
     Dates: start: 20110509, end: 20110606
  13. LORATADINE [Concomitant]
     Dates: start: 20110509, end: 20110708
  14. LEVOTHYROXINE SODIUM [Concomitant]
     Indication: PRODUCT USED FOR UNKNOWN INDICATION
     Dates: start: 20110406, end: 20110504
  15. METRONIDAZOLE [Concomitant]
     Indication: PRODUCT USED FOR UNKNOWN INDICATION
     Dates: start: 20110520, end: 20110527

REACTIONS (3)
  - FATIGUE [None]
  - LETHARGY [None]
  - HYPERSOMNIA [None]
